FAERS Safety Report 9445817 (Version 1)
Quarter: 2013Q3

REPORT INFORMATION
  Report Type: Spontaneous
  Country: US (occurrence: US)
  Receive Date: 20130807
  Receipt Date: 20130807
  Transmission Date: 20140515
  Serious: Yes (Hospitalization)
  Sender: FDA-Public Use
  Company Number: US-BAUSCH-BL-2013-004418

PATIENT
  Sex: Female

DRUGS (2)
  1. LATANOPROST OPHTHALMIC SOLUTION 0.005% [Suspect]
     Indication: GLAUCOMA
     Dosage: UNKNOWN DOSE; OPHTHALMIC
     Route: 047
  2. AZOPT [Suspect]

REACTIONS (3)
  - Atrial fibrillation [Unknown]
  - Diarrhoea [Unknown]
  - Hypertension [Unknown]
